FAERS Safety Report 5587769-8 (Version None)
Quarter: 2007Q4

REPORT INFORMATION
  Report Type: 
  Country: None (occurrence: None)
  Receive Date: 20071231
  Receipt Date: 20070928
  Transmission Date: 20080405
  Serious: Yes (Hospitalization, Other)
  Sender: FDA-Public Use
  Company Number: AEUSA200700224

PATIENT
  Age: 54 Year
  Sex: Female
  Weight: 52.1637 kg

DRUGS (15)
  1. PROLASTIN [Suspect]
     Indication: ALPHA-1 ANTI-TRYPSIN DEFICIENCY
     Dosage: 1110 MG;QW;IV
     Route: 042
     Dates: start: 20070901, end: 20071004
  2. LEXAPRO [Concomitant]
  3. LAMIVUDINE [Concomitant]
  4. PROGRAF [Concomitant]
  5. MYFORTIC [Concomitant]
  6. PREDNISONE TAB [Concomitant]
  7. VALTREX [Concomitant]
  8. ZITHROMAX [Concomitant]
  9. MEPRON [Concomitant]
  10. IMMUNE GLOBULIN INTRAVENOUS (HUMAN) [Concomitant]
  11. PRILOSEC [Concomitant]
  12. PRENATAL VITAMINS [Concomitant]
  13. VIACTIV [Concomitant]
  14. MYCELEX [Concomitant]
  15. OXYCODONE [Concomitant]

REACTIONS (7)
  - EAR PAIN [None]
  - ERYTHEMA [None]
  - HYPOAESTHESIA ORAL [None]
  - MUSCLE SPASMS [None]
  - PARAESTHESIA ORAL [None]
  - SINUSITIS BACTERIAL [None]
  - STAPHYLOCOCCAL INFECTION [None]
